FAERS Safety Report 18495183 (Version 1)
Quarter: 2020Q4

REPORT INFORMATION
  Report Type: Spontaneous
  Country: US (occurrence: US)
  Receive Date: 20201111
  Receipt Date: 20201111
  Transmission Date: 20210114
  Serious: No
  Sender: FDA-Public Use
  Company Number: None

PATIENT
  Age: 32 Year
  Sex: Male
  Weight: 109.48 kg

DRUGS (1)
  1. OLANZAPINE ODT [Suspect]
     Active Substance: OLANZAPINE
     Indication: HALLUCINATION, AUDITORY
     Route: 048
     Dates: start: 20200910, end: 20200930

REACTIONS (3)
  - Hunger [None]
  - Increased appetite [None]
  - Weight increased [None]

NARRATIVE: CASE EVENT DATE: 20200916
